FAERS Safety Report 15401723 (Version 4)
Quarter: 2018Q4

REPORT INFORMATION
  Report Type: Report from Study
  Country: JP (occurrence: JP)
  Receive Date: 20180919
  Receipt Date: 20181218
  Transmission Date: 20190204
  Serious: Yes (Hospitalization)
  Sender: FDA-Public Use
  Company Number: PHJP2018JP014482

PATIENT
  Age: 81 Year
  Sex: Male
  Weight: 60.5 kg

DRUGS (13)
  1. MOHRUS [Concomitant]
     Active Substance: KETOPROFEN
     Indication: BACK PAIN
     Dosage: 1 SHEET, QD
     Route: 062
     Dates: start: 20180210
  2. MADOPAR [Concomitant]
     Active Substance: BENSERAZIDE HYDROCHLORIDE\LEVODOPA
     Indication: PARKINSONISM
     Dosage: 1 DF, QID
     Route: 048
     Dates: start: 20180606
  3. HEPARINOID [Concomitant]
     Active Substance: CHONDROITIN SULFATE (BOVINE)
     Indication: PROPHYLAXIS
     Dosage: Q.S. PER ADMINISTRATION, QD
     Route: 061
     Dates: start: 20180228
  4. ATORVASTATIN [Concomitant]
     Active Substance: ATORVASTATIN
     Indication: DYSLIPIDAEMIA
     Dosage: 5 MG, QD
     Route: 048
     Dates: start: 20100609
  5. JANUVIA [Concomitant]
     Active Substance: SITAGLIPTIN PHOSPHATE
     Indication: DIABETES MELLITUS
     Dosage: 50 MG, QD
     Route: 048
     Dates: start: 20130911
  6. CALCITRIOL. [Concomitant]
     Active Substance: CALCITRIOL
     Indication: TEMPORAL ARTERITIS
     Dosage: 0.5 UG, QD
     Route: 048
  7. PLACEBO [Suspect]
     Active Substance: UNSPECIFIED INGREDIENT
     Indication: CARDIOVASCULAR EVENT PROPHYLAXIS
     Dosage: UNK
     Route: 058
     Dates: end: 20170426
  8. CLOPIDOGREL [Concomitant]
     Active Substance: CLOPIDOGREL BISULFATE
     Indication: ISCHAEMIC HEART DISEASE PROPHYLAXIS
     Dosage: 75 MG, QD
     Route: 048
     Dates: start: 20100202
  9. BISOPROLOL FUMARATE. [Concomitant]
     Active Substance: BISOPROLOL FUMARATE
     Indication: PROPHYLAXIS
     Dosage: 2.5 MG, QD
     Route: 048
     Dates: start: 20121212
  10. DILTIAZEM HYDROCHLORIDE. [Concomitant]
     Active Substance: DILTIAZEM HYDROCHLORIDE
     Indication: ANGINA PECTORIS
     Dosage: 100 MG, QD
     Route: 048
     Dates: start: 20160510
  11. NEUPRO [Concomitant]
     Active Substance: ROTIGOTINE
     Indication: PARKINSONISM
     Dosage: 1 SHEET, QD
     Route: 062
     Dates: start: 20180418
  12. ACZ885 [Suspect]
     Active Substance: CANAKINUMAB
     Indication: CARDIOVASCULAR EVENT PROPHYLAXIS
     Dosage: 150 MG, Q3MO
     Route: 058
     Dates: start: 20180201, end: 20180606
  13. PARIET [Concomitant]
     Active Substance: RABEPRAZOLE SODIUM
     Indication: GASTRITIS PROPHYLAXIS
     Dosage: 10 MG, QD
     Route: 048
     Dates: start: 20100428

REACTIONS (2)
  - Colon cancer [Recovered/Resolved]
  - Ileus [Recovered/Resolved]

NARRATIVE: CASE EVENT DATE: 20180717
